FAERS Safety Report 10788538 (Version 3)
Quarter: 2015Q1

REPORT INFORMATION
  Report Type: Report from Study
  Country: FR (occurrence: FR)
  Receive Date: 20150212
  Receipt Date: 20150226
  Transmission Date: 20150721
  Serious: Yes (Hospitalization, Other)
  Sender: FDA-Public Use
  Company Number: FR-SA-2014SA163301

PATIENT
  Age: 77 Year
  Sex: Male

DRUGS (1)
  1. CABAZITAXEL [Suspect]
     Active Substance: CABAZITAXEL
     Route: 065

REACTIONS (28)
  - Onychomadesis [Recovering/Resolving]
  - Stomatitis [Unknown]
  - Erythema [Recovering/Resolving]
  - Diarrhoea [Unknown]
  - Oedema peripheral [Unknown]
  - Pain [Unknown]
  - Pain [Unknown]
  - Alopecia [Recovering/Resolving]
  - Pulmonary congestion [Unknown]
  - Productive cough [Unknown]
  - Fatigue [Recovering/Resolving]
  - Swelling [Unknown]
  - Skin exfoliation [Unknown]
  - Leukopenia [Unknown]
  - Peripheral sensory neuropathy [Unknown]
  - Hypotension [Unknown]
  - Oedema peripheral [Not Recovered/Not Resolved]
  - Decreased appetite [Recovering/Resolving]
  - Pain [Unknown]
  - Epistaxis [Unknown]
  - Lacrimation increased [Recovering/Resolving]
  - Tongue discolouration [Unknown]
  - Blood pressure systolic abnormal [Unknown]
  - Erythema [Unknown]
  - Nausea [Unknown]
  - Burning sensation [Recovering/Resolving]
  - Ageusia [Unknown]
  - Dyspnoea exertional [Unknown]

NARRATIVE: CASE EVENT DATE: 20000101
